FAERS Safety Report 8256425-X (Version None)
Quarter: 2012Q2

REPORT INFORMATION
  Report Type: 
  Country: None (occurrence: None)
  Receive Date: 20120403
  Receipt Date: 20120328
  Transmission Date: 20120825
  Serious: Yes (Other)
  Sender: FDA-Public Use
  Company Number: US-PFIZER INC-2012079858

PATIENT
  Sex: Female
  Weight: 56.689 kg

DRUGS (5)
  1. LYRICA [Suspect]
     Indication: NECK PAIN
  2. SOMA [Concomitant]
     Indication: MUSCLE RELAXANT THERAPY
     Dosage: UNK
  3. NORCO [Concomitant]
     Dosage: UNK
  4. LYRICA [Suspect]
     Indication: INTERVERTEBRAL DISC PROTRUSION
     Dosage: 150 MG, 2X/DAY
     Route: 048
     Dates: start: 20110201
  5. LYRICA [Suspect]
     Indication: HEADACHE

REACTIONS (1)
  - ROAD TRAFFIC ACCIDENT [None]
